FAERS Safety Report 7279671-0 (Version None)
Quarter: 2011Q1

REPORT INFORMATION
  Report Type: 
  Country: None (occurrence: None)
  Receive Date: 20110203
  Receipt Date: 20110203
  Transmission Date: 20110831
  Serious: Yes (Hospitalization)
  Sender: FDA-Public Use
  Company Number: None

PATIENT
  Age: 23 Year
  Sex: Female
  Weight: 106.7 kg

DRUGS (8)
  1. ALBUTEROL [Concomitant]
  2. LISINOPRIL [Suspect]
     Indication: HYPERTENSION
     Dosage: 5 MG BID PO
     Route: 048
     Dates: start: 20110121, end: 20110123
  3. ALDACTONE [Concomitant]
  4. CELLCEPT [Concomitant]
  5. COZAAR [Suspect]
     Indication: HYPERTENSION
     Dosage: 100 MG DAILY PO
     Route: 048
  6. LOPRESSOR [Concomitant]
  7. NORVASC [Concomitant]
  8. HYDROXYCHLOROQUINE [Concomitant]

REACTIONS (1)
  - LIP SWELLING [None]
